FAERS Safety Report 7718071-3 (Version None)
Quarter: 2011Q3

REPORT INFORMATION
  Report Type: 
  Country: None (occurrence: None)
  Receive Date: 20110830
  Receipt Date: 20110823
  Transmission Date: 20111222
  Serious: Yes (Disabling)
  Sender: FDA-Public Use
  Company Number: JP-JNJFOC-20110703824

PATIENT
  Age: 37 Year
  Sex: Male
  Weight: 74 kg

DRUGS (12)
  1. REMICADE [Suspect]
     Route: 042
     Dates: start: 20100715
  2. FOLIC ACID [Concomitant]
     Indication: PROPHYLAXIS
     Dosage: START DATE UNKNOWN BUT PRIOR TO INFLIXIMAB
     Route: 048
  3. REMICADE [Suspect]
     Route: 042
     Dates: start: 20110126
  4. MUCOSTA [Concomitant]
     Indication: PROPHYLAXIS
     Route: 048
     Dates: start: 20100902
  5. LOXONIN [Concomitant]
     Indication: ANKYLOSING SPONDYLITIS
     Dosage: START DATE UNKNOWN BUT PRIOR TO INFLIXIMAB
     Route: 048
     Dates: end: 20100901
  6. REMICADE [Suspect]
     Route: 042
     Dates: start: 20100616
  7. LOXONIN [Concomitant]
     Route: 048
     Dates: start: 20100902
  8. REMICADE [Suspect]
     Route: 042
     Dates: start: 20100901
  9. REMICADE [Suspect]
     Route: 042
     Dates: start: 20100602
  10. RHEUMATREX [Concomitant]
     Indication: ANKYLOSING SPONDYLITIS
     Dosage: START DATE UNKNOWN BUT PRIOR TO INFLIXIMAB
     Route: 048
  11. REMICADE [Suspect]
     Indication: ANKYLOSING SPONDYLITIS
     Route: 042
     Dates: start: 20110223
  12. MUCOSTA [Concomitant]
     Dosage: START DATE UNKNOWN BUT PRIOR TO INFLIXIMAB
     Route: 048
     Dates: end: 20100901

REACTIONS (1)
  - HYPOAESTHESIA [None]
